FAERS Safety Report 4737074-4 (Version None)
Quarter: 2005Q3

REPORT INFORMATION
  Report Type: 
  Country: None (occurrence: None)
  Receive Date: 20050804
  Receipt Date: 20050707
  Transmission Date: 20060218
  Serious: Yes (Hospitalization, Disabling)
  Sender: FDA-Public Use
  Company Number: ENTC2005-0196

PATIENT
  Sex: Female

DRUGS (6)
  1. STALEVO 100 [Suspect]
     Indication: PARKINSON'S DISEASE
     Dosage: 150/37.5/200 X 4 ORAL
     Route: 048
     Dates: start: 20041101
  2. COMTESS (ENTACAPONE) [Suspect]
     Indication: PARKINSON'S DISEASE
     Dosage: 800 MG (200 MG, 4 IN 1 D), ORAL
     Route: 048
     Dates: start: 20000601
  3. SINEMET CR [Suspect]
     Indication: PARKINSON'S DISEASE
     Dosage: 1 TABLET (50/200)
     Dates: start: 20000601
  4. SINEMET [Suspect]
     Indication: PARKINSON'S DISEASE
     Dosage: 125 MG, 1 1/2 TABLETS X 4 ORAL
     Route: 048
     Dates: start: 20000601
  5. MIRTAZAPINE [Concomitant]
  6. TAMOXIFEN CITRATE [Concomitant]

REACTIONS (3)
  - DYSPHAGIA [None]
  - HYPERVENTILATION [None]
  - THERAPY NON-RESPONDER [None]
